FAERS Safety Report 25851964 (Version 1)
Quarter: 2025Q3

REPORT INFORMATION
  Report Type: Spontaneous
  Country: US (occurrence: None)
  Receive Date: 20250925
  Receipt Date: 20250925
  Transmission Date: 20251020
  Serious: Yes (Other)
  Sender: FDA-CTU
  Company Number: None

PATIENT
  Age: 24 Year
  Sex: Female
  Weight: 58.5 kg

DRUGS (3)
  1. PROPRANOLOL [Suspect]
     Active Substance: PROPRANOLOL HYDROCHLORIDE
     Indication: Postural orthostatic tachycardia syndrome
     Dosage: OTHER QUANTITY : 180 TABLET(S);?FREQUENCY : EVERY 12 HOURS;?
     Route: 048
     Dates: start: 20250923
  2. Sprintec .35 Dupixent 300mg injection [Concomitant]
  3. Once Daily Womens Vitality Ancient Nutrition [Concomitant]

REACTIONS (10)
  - Adverse drug reaction [None]
  - Nervous system disorder [None]
  - Lethargy [None]
  - Confusional state [None]
  - Dizziness [None]
  - Somnolence [None]
  - Mood altered [None]
  - Depression [None]
  - Suicidal ideation [None]
  - Respiratory depression [None]

NARRATIVE: CASE EVENT DATE: 20250925
